FAERS Safety Report 18947168 (Version 1)
Quarter: 2021Q1

REPORT INFORMATION
  Report Type: Spontaneous
  Country: US (occurrence: US)
  Receive Date: 20210227
  Receipt Date: 20210227
  Transmission Date: 20210420
  Serious: No
  Sender: FDA-Public Use
  Company Number: US-ROCHE-2522446

PATIENT
  Age: 11 Year
  Sex: Male
  Weight: 35.41 kg

DRUGS (4)
  1. ALBUTEROL. [Concomitant]
     Active Substance: ALBUTEROL
     Indication: ASTHMA
     Route: 045
  2. XOLAIR [Suspect]
     Active Substance: OMALIZUMAB
     Indication: ASTHMA
  3. XOLAIR [Suspect]
     Active Substance: OMALIZUMAB
     Indication: PRODUCT USED FOR UNKNOWN INDICATION
     Route: 065
  4. XOLAIR [Suspect]
     Active Substance: OMALIZUMAB
     Indication: CHRONIC SPONTANEOUS URTICARIA
     Route: 058
     Dates: start: 2018

REACTIONS (14)
  - Asthma [Recovered/Resolved]
  - Fatigue [Recovered/Resolved]
  - Dark circles under eyes [Unknown]
  - Nausea [Recovered/Resolved]
  - Urticaria [Recovered/Resolved]
  - Product use issue [Unknown]
  - Pallor [Recovered/Resolved]
  - Headache [Unknown]
  - Device intolerance [Recovered/Resolved]
  - Off label use [Unknown]
  - Rhinorrhoea [Recovered/Resolved]
  - Body temperature decreased [Recovered/Resolved]
  - Chest discomfort [Recovered/Resolved]
  - Hypersensitivity [Unknown]

NARRATIVE: CASE EVENT DATE: 20190913
